FAERS Safety Report 14559849 (Version 1)
Quarter: 2018Q1

REPORT INFORMATION
  Report Type: Spontaneous
  Country: US (occurrence: US)
  Receive Date: 20180220
  Receipt Date: 20180220
  Transmission Date: 20180509
  Serious: Yes (Other)
  Sender: FDA-Public Use
  Company Number: None

PATIENT
  Age: 7 Month
  Sex: Female
  Weight: 9 kg

DRUGS (1)
  1. OSELTAMIVIR PHOSPHATE. [Suspect]
     Active Substance: OSELTAMIVIR PHOSPHATE
     Indication: INFLUENZA LIKE ILLNESS
     Dosage: ?          QUANTITY:5 ML;?
     Route: 048
     Dates: start: 20180216, end: 20180218

REACTIONS (9)
  - Screaming [None]
  - Confusional state [None]
  - Head titubation [None]
  - Delirium [None]
  - Abnormal behaviour [None]
  - Crying [None]
  - Agitation [None]
  - Protrusion tongue [None]
  - Rash generalised [None]

NARRATIVE: CASE EVENT DATE: 20180217
